FAERS Safety Report 24424092 (Version 1)
Quarter: 2024Q4

REPORT INFORMATION
  Report Type: Spontaneous
  Country: US (occurrence: US)
  Receive Date: 20241010
  Receipt Date: 20241010
  Transmission Date: 20250115
  Serious: Yes (Death)
  Sender: SEBELA
  Company Number: US-SEBELA IRELAND LIMITED-2024SEB00068

PATIENT
  Age: 26 Year
  Sex: Male

DRUGS (5)
  1. HYDROCORTISONE [Suspect]
     Active Substance: HYDROCORTISONE
     Indication: Adrenal insufficiency
     Dosage: INITIAL UNKNOWN
  2. HYDROCORTISONE [Suspect]
     Active Substance: HYDROCORTISONE
     Dosage: 20 MG
  3. ATOVAQUONE [Concomitant]
     Active Substance: ATOVAQUONE
     Indication: Adrenal insufficiency
  4. PYRIMETHAMINE [Concomitant]
     Active Substance: PYRIMETHAMINE
     Indication: Adrenal insufficiency
  5. LEUCOVORIN [Concomitant]
     Active Substance: LEUCOVORIN\LEUCOVORIN CALCIUM
     Indication: Adrenal insufficiency

REACTIONS (1)
  - Malignant neoplasm progression [Fatal]
